FAERS Safety Report 7474739-8 (Version None)
Quarter: 2011Q2

REPORT INFORMATION
  Report Type: 
  Country: None (occurrence: None)
  Receive Date: 20110505
  Receipt Date: 20110426
  Transmission Date: 20111010
  Serious: Yes (Death)
  Sender: FDA-Public Use
  Company Number: 2011MA002500

PATIENT
  Age: 46 Year
  Sex: Female

DRUGS (2)
  1. PROPRANOLOL HYDROCHLORIDE [Suspect]
     Indication: ANXIETY
     Dosage: 40 MG, TID, PO
     Route: 048
     Dates: start: 20110124, end: 20110125
  2. RAMIPRIL [Concomitant]

REACTIONS (4)
  - LEFT VENTRICULAR HYPERTROPHY [None]
  - FALL [None]
  - CHEST PAIN [None]
  - ARRHYTHMIA [None]
